FAERS Safety Report 21764428 (Version 1)
Quarter: 2022Q4

REPORT INFORMATION
  Report Type: Spontaneous
  Country: FR (occurrence: FR)
  Receive Date: 20221222
  Receipt Date: 20221222
  Transmission Date: 20230113
  Serious: Yes (Other)
  Sender: FDA-Public Use
  Company Number: None

PATIENT
  Age: 44 Year
  Sex: Male

DRUGS (9)
  1. GABAPENTIN [Suspect]
     Active Substance: GABAPENTIN
     Indication: Product used for unknown indication
     Dosage: 1200 MILLIGRAM DAILY; 1200MG/DAY , THERAPY END DATE : NASK
     Dates: start: 20220921
  2. DULOXETINE [Suspect]
     Active Substance: DULOXETINE
     Indication: Depression
     Dosage: 60 MILLIGRAM DAILY; 60MG/DAY , THERAPY END DATE : NASK
     Dates: start: 20221004
  3. TRAMADOL [Suspect]
     Active Substance: TRAMADOL
     Indication: Pain
     Dosage: THERAPY END DATE : NASK
     Dates: start: 20221001
  4. REFRESH CELLUVISC [Suspect]
     Active Substance: CARBOXYMETHYLCELLULOSE SODIUM
     Indication: Dry eye
     Dosage: 1 DROP 2 TO 4 TIMES A DAY, 4 MG/0.4 ML, EYE DROPS IN A SINGLE-DOSE CONTAINER   ,THERAPY END DATE : N
     Dates: start: 20220916
  5. DAFALGAN [Suspect]
     Active Substance: ACETAMINOPHEN
     Indication: Pain
     Dosage: 4 DOSAGE FORMS DAILY; 1 TABLET 4 TIMES A DAY  , FORM STRENGTH : 1 GRAM , THERAPY START DATE : ASKU
  6. AMITRIPTYLINE HYDROCHLORIDE [Suspect]
     Active Substance: AMITRIPTYLINE HYDROCHLORIDE
     Indication: Product used for unknown indication
     Dosage: 25 GTT DAILY;  5 DROPS 5 TIMES A DAY   , FORM STRENGTH : 40 MG/ML , THERAPY END DATE : NASK
     Dates: start: 20220921
  7. CYANOCOBALAMIN [Suspect]
     Active Substance: CYANOCOBALAMIN
     Indication: Corneal scar
     Dosage: 1 DROP 3 TO 4 TIMES A DAY  ,  0.2 MG/0.4 ML EYE DROPS, SOLUTION IN SINGLE-DOSE CONTAINER , THERAPY E
     Dates: start: 20220915
  8. LOVENOX [Suspect]
     Active Substance: ENOXAPARIN SODIUM
     Indication: Prophylaxis
     Dosage: THERAPY END DATE : NASK
     Dates: start: 20220909
  9. LEVOTHYROXINE [Suspect]
     Active Substance: LEVOTHYROXINE
     Indication: Hypothyroidism
     Dosage: 1 DOSAGE FORMS DAILY;  1 TABLET/DAY  , THERAPY END DATE : NASK
     Dates: start: 20220922

REACTIONS (2)
  - Leukopenia [Not Recovered/Not Resolved]
  - Neutropenia [Not Recovered/Not Resolved]

NARRATIVE: CASE EVENT DATE: 20221007
